FAERS Safety Report 9135401 (Version 1)
Quarter: 2013Q1

REPORT INFORMATION
  Report Type: Report from Study
  Country: FR (occurrence: FR)
  Receive Date: 20130304
  Receipt Date: 20130304
  Transmission Date: 20140127
  Serious: Yes (Hospitalization)
  Sender: FDA-Public Use
  Company Number: FR-009507513-2007SP012383

PATIENT
  Age: 41 Year
  Sex: Male
  Weight: 134 kg

DRUGS (18)
  1. PEGINTERFERON ALFA-2B [Suspect]
     Indication: CHRONIC HEPATITIS C
     Dosage: 50 ?G, QW
     Dates: start: 20070607, end: 20070821
  2. PLACEBO [Suspect]
     Indication: CHRONIC HEPATITIS C
     Dosage: 1200 MG, QD
     Route: 048
     Dates: start: 20070607, end: 20070821
  3. LASILIX [Suspect]
     Indication: HYPERTENSION
     Dosage: 40 MG, QD
     Dates: start: 200608, end: 20070706
  4. LASILIX [Suspect]
     Indication: OEDEMA PERIPHERAL
     Dosage: 40 MG, QD
     Dates: end: 20071130
  5. LASILIX [Suspect]
     Dosage: 40 MG, QD
     Dates: start: 20080109
  6. LOXAPAC (LOXAPINE SUCCINATE) [Suspect]
     Indication: ANXIETY
     Dosage: 50 MG, BID
     Dates: start: 1996, end: 20070903
  7. LOXAPAC (LOXAPINE SUCCINATE) [Suspect]
     Dosage: 25 MG, BID
     Dates: start: 20070903
  8. LAROXYL [Concomitant]
     Indication: DEPRESSION
     Dosage: STARTED PRIOR INCLUSION IN THE STUDY
     Dates: start: 1996
  9. KERLONE [Concomitant]
     Indication: HYPERTENSION
     Dosage: STARTED PRIOR INCLUSION IN THE STUDY
     Dates: start: 20070620
  10. MOPRAL (OMEPRAZOLE) [Concomitant]
     Indication: GASTRITIS PROPHYLAXIS
     Dosage: STARTED PRIOR INCLUSION IN THE STUDY
  11. NIAOULI OIL (+) QUININE BENZOATE (+) THIAMINE HYDROCHLORIDE [Concomitant]
     Indication: MUSCLE SPASMS
     Dosage: 1 DF, BID
     Dates: start: 20070620
  12. DIFFU-K [Concomitant]
     Indication: HYPOKALAEMIA
     Dosage: 4 DF, TID
     Dates: start: 20070718
  13. INIPOMP [Concomitant]
     Indication: GASTRIC ULCER
     Dosage: 40 MG, QD
     Dates: start: 20071113
  14. DUPHALAC [Concomitant]
     Indication: ENCEPHALOPATHY
     Dosage: 3 DF QID SINCE 11SEP2007 FOR CONSTIPATION
     Dates: start: 20070704
  15. FORLAX [Concomitant]
     Indication: CONSTIPATION
     Dosage: 20 G, PRN
     Dates: start: 20071213
  16. DAFALGAN [Concomitant]
     Indication: PAIN IN EXTREMITY
     Dosage: 1 G, PRN
     Dates: start: 20070718
  17. MK-9384 [Concomitant]
     Indication: ARTHRALGIA
     Dosage: 200 MG, TID
     Dates: start: 20070704
  18. TOPALGIC (TRAMADOL HYDROCHLORIDE) [Concomitant]
     Indication: PAIN
     Dosage: 50 MG, PRN
     Dates: start: 20070704

REACTIONS (7)
  - General physical health deterioration [Recovered/Resolved]
  - Hepatic pain [Recovered/Resolved]
  - Osteoarthritis [Recovered/Resolved]
  - Chondropathy [Recovered/Resolved]
  - Hepatic encephalopathy [Recovered/Resolved]
  - Weight decreased [Recovered/Resolved]
  - Liver transplant [Recovered/Resolved with Sequelae]
